FAERS Safety Report 4583705-1 (Version None)
Quarter: 2005Q1

REPORT INFORMATION
  Report Type: 
  Country: None (occurrence: None)
  Receive Date: 20050216
  Receipt Date: 20050207
  Transmission Date: 20050727
  Serious: Yes (Hospitalization)
  Sender: FDA-Public Use
  Company Number: FR-BRISTOL-MYERS SQUIBB COMPANY-12853834

PATIENT
  Age: 66 Year
  Sex: Male

DRUGS (6)
  1. CARBOPLATIN [Suspect]
     Indication: NON-SMALL CELL LUNG CANCER
     Route: 042
     Dates: start: 20040427, end: 20040511
  2. TAXOL [Suspect]
     Indication: NON-SMALL CELL LUNG CANCER
     Route: 042
     Dates: start: 20040427, end: 20040511
  3. DEXAMETHASONE [Suspect]
     Route: 042
     Dates: start: 20040427, end: 20040511
  4. AZANTAC [Suspect]
     Route: 042
     Dates: start: 20040427, end: 20040511
  5. POLARAMINE [Suspect]
     Route: 042
     Dates: start: 20040427, end: 20040511
  6. RADIATION THERAPY [Concomitant]
     Dates: start: 20040505, end: 20040630

REACTIONS (1)
  - INTERSTITIAL LUNG DISEASE [None]
